FAERS Safety Report 8927066 (Version 2)
Quarter: 2013Q1

REPORT INFORMATION
  Report Type: Spontaneous
  Country: US (occurrence: US)
  Receive Date: 20121127
  Receipt Date: 20130305
  Transmission Date: 20140127
  Serious: Yes (Hospitalization)
  Sender: FDA-Public Use
  Company Number: US-ASTRAZENECA-2012SE88142

PATIENT
  Age: 842 Month
  Sex: Male
  Weight: 68 kg

DRUGS (4)
  1. PRILOSEC [Suspect]
     Indication: ULCER
     Route: 048
  2. HYTRIN [Suspect]
     Route: 065
  3. SULFA [Suspect]
     Route: 065
  4. TERAZOSIN [Concomitant]
     Indication: PROSTATOMEGALY
     Route: 048
     Dates: start: 2010

REACTIONS (15)
  - Laryngitis [Recovered/Resolved]
  - Gastric ulcer haemorrhage [Recovered/Resolved]
  - Haematemesis [Unknown]
  - Drug hypersensitivity [Recovered/Resolved]
  - Prostatomegaly [Unknown]
  - Muscle spasms [Unknown]
  - Feeling jittery [Unknown]
  - Tremor [Unknown]
  - Muscle spasms [Unknown]
  - Asthenia [Not Recovered/Not Resolved]
  - Dizziness [Unknown]
  - Muscular weakness [Unknown]
  - Muscular weakness [Not Recovered/Not Resolved]
  - Dizziness [Not Recovered/Not Resolved]
  - Lethargy [Unknown]
